FAERS Safety Report 12807671 (Version 4)
Quarter: 2017Q1

REPORT INFORMATION
  Report Type: Report from Study
  Country: JP (occurrence: JP)
  Receive Date: 20161004
  Receipt Date: 20170207
  Transmission Date: 20170428
  Serious: Yes (Death, Other)
  Sender: FDA-Public Use
  Company Number: PHJP2016JP028069

PATIENT
  Age: 91 Year
  Sex: Male

DRUGS (1)
  1. ELTROMBOPAG [Suspect]
     Active Substance: ELTROMBOPAG
     Indication: IMMUNE THROMBOCYTOPENIC PURPURA
     Dosage: 12.5 MG, QD
     Route: 048
     Dates: start: 20140711, end: 20160924

REACTIONS (3)
  - Pneumonia aspiration [Fatal]
  - Cardiac failure [Recovering/Resolving]
  - Bundle branch block right [Unknown]

NARRATIVE: CASE EVENT DATE: 201609
